FAERS Safety Report 6007530-X (Version None)
Quarter: 2008Q4

REPORT INFORMATION
  Report Type: 
  Country: None (occurrence: None)
  Receive Date: 20081217
  Receipt Date: 20080505
  Transmission Date: 20090506
  Serious: No
  Sender: FDA-Public Use
  Company Number: US-ASTRAZENECA-2008UW09178

PATIENT
  Age: 64 Year
  Sex: Male

DRUGS (7)
  1. CRESTOR [Suspect]
     Indication: BLOOD CHOLESTEROL INCREASED
     Route: 048
     Dates: start: 20060101
  2. LASIX [Concomitant]
  3. AMIOBARONE [Concomitant]
  4. DYAZIDE [Concomitant]
  5. DIUREX [Concomitant]
  6. IMDUR [Concomitant]
  7. ZETIA [Concomitant]

REACTIONS (1)
  - BLOOD CHOLESTEROL INCREASED [None]
